FAERS Safety Report 10571777 (Version 1)
Quarter: 2014Q4

REPORT INFORMATION
  Report Type: Spontaneous
  Country: IT (occurrence: IT)
  Receive Date: 20141107
  Receipt Date: 20141107
  Transmission Date: 20150529
  Serious: Yes (Other)
  Sender: FDA-Public Use
  Company Number: IT-ABBVIE-14P-083-1304889-00

PATIENT
  Age: 58 Year
  Sex: Male

DRUGS (1)
  1. ADALIMUMAB [Suspect]
     Active Substance: ADALIMUMAB
     Indication: RHEUMATOID ARTHRITIS
     Route: 058

REACTIONS (4)
  - Renal disorder [Recovered/Resolved]
  - Type 2 diabetes mellitus [Unknown]
  - Oedema peripheral [Unknown]
  - Autoimmune disorder [Recovered/Resolved]
